FAERS Safety Report 7163086-X (Version None)
Quarter: 2010Q4

REPORT INFORMATION
  Report Type: 
  Country: None (occurrence: None)
  Receive Date: 20101215
  Receipt Date: 20100222
  Transmission Date: 20110411
  Serious: Yes (Other)
  Sender: FDA-Public Use
  Company Number: US-PFIZER INC-2010025875

PATIENT
  Sex: Female

DRUGS (2)
  1. LYRICA [Suspect]
     Indication: FIBROMYALGIA
     Dosage: 75 MG, 2X/DAY
     Dates: start: 20080101
  2. METOPROLOL TARTRATE [Concomitant]
     Dosage: UNK

REACTIONS (15)
  - ASTHENIA [None]
  - CARDIAC DISORDER [None]
  - DISTURBANCE IN ATTENTION [None]
  - DYSPHAGIA [None]
  - EYE PRURITUS [None]
  - EYE SWELLING [None]
  - INSOMNIA [None]
  - IRRITABILITY [None]
  - LIP SWELLING [None]
  - OEDEMA MOUTH [None]
  - PAIN [None]
  - PHARYNGEAL OEDEMA [None]
  - RASH [None]
  - SOMNOLENCE [None]
  - SWELLING FACE [None]
